FAERS Safety Report 5715418-4 (Version None)
Quarter: 2008Q2

REPORT INFORMATION
  Report Type: 
  Country: None (occurrence: None)
  Receive Date: 20080423
  Receipt Date: 20080412
  Transmission Date: 20081010
  Serious: Yes (Hospitalization)
  Sender: FDA-Public Use
  Company Number: AU-PFIZER INC-2008033923

PATIENT
  Age: 26 Year
  Sex: Male

DRUGS (1)
  1. CHAMPIX [Suspect]

REACTIONS (6)
  - ACCIDENTAL OVERDOSE [None]
  - HEADACHE [None]
  - MEMORY IMPAIRMENT [None]
  - PALPITATIONS [None]
  - SUICIDAL IDEATION [None]
  - SYNCOPE [None]
